FAERS Safety Report 17607877 (Version 1)
Quarter: 2020Q1

REPORT INFORMATION
  Report Type: Spontaneous
  Country: US (occurrence: US)
  Receive Date: 20200331
  Receipt Date: 20200331
  Transmission Date: 20200409
  Serious: Yes (Other)
  Sender: FDA-Public Use
  Company Number: US-GE HEALTHCARE LIFE SCIENCES-2020CSU001277

PATIENT
  Age: 24 Day
  Weight: .9 kg

DRUGS (2)
  1. VISIPAQUE [Suspect]
     Active Substance: IODIXANOL
     Indication: PATENT DUCTUS ARTERIOSUS REPAIR
     Dosage: UNK UNK, SINGLE
     Route: 042
  2. VISIPAQUE [Suspect]
     Active Substance: IODIXANOL
     Indication: PATENT DUCTUS ARTERIOSUS

REACTIONS (1)
  - Hypothyroidism [Unknown]
